FAERS Safety Report 10520600 (Version 5)
Quarter: 2015Q2

REPORT INFORMATION
  Report Type: Report from Study
  Country: GB (occurrence: GB)
  Receive Date: 20141015
  Receipt Date: 20150504
  Transmission Date: 20150821
  Serious: Yes (Life-Threatening, Hospitalization)
  Sender: FDA-Public Use
  Company Number: GB-GILEAD-2014-0117798

PATIENT
  Age: 60 Year
  Sex: Female

DRUGS (13)
  1. QUININE [Concomitant]
     Active Substance: QUININE
     Dosage: UNK
     Dates: start: 20140923
  2. IDELALISIB [Suspect]
     Active Substance: IDELALISIB
     Indication: B-CELL LYMPHOMA
     Dosage: 150 MG, BID
     Route: 048
     Dates: start: 20140922, end: 20141008
  3. IDELALISIB [Suspect]
     Active Substance: IDELALISIB
     Dosage: 150 UNK, UNK
     Route: 048
     Dates: start: 20150130
  4. LOPERAMIDE [Concomitant]
     Active Substance: LOPERAMIDE
     Dosage: UNK
     Dates: start: 20140922
  5. FILGRASTIM [Concomitant]
     Active Substance: FILGRASTIM
     Dosage: UNK
     Dates: start: 20140925
  6. RITUXIMAB [Suspect]
     Active Substance: RITUXIMAB
     Dosage: 600 UNK, UNK
     Route: 042
     Dates: start: 20150130
  7. ALLOPURINOL. [Concomitant]
     Active Substance: ALLOPURINOL
     Dosage: UNK
     Dates: start: 20140922
  8. BENDAMUSTINE [Suspect]
     Active Substance: BENDAMUSTINE
     Indication: B-CELL LYMPHOMA
     Dosage: 145 MG, UNK
     Route: 042
     Dates: start: 20140922, end: 20141008
  9. SENNA [Concomitant]
     Active Substance: SENNA LEAF\SENNOSIDES\SENNOSIDES A AND B
     Dosage: UNK
     Dates: start: 20140924
  10. LANSOPRAZOLE. [Concomitant]
     Active Substance: LANSOPRAZOLE
     Dosage: UNK
     Dates: start: 20140924
  11. BENDAMUSTINE [Suspect]
     Active Substance: BENDAMUSTINE
     Dosage: 145 UNK, UNK
     Route: 042
     Dates: start: 20150130
  12. RITUXIMAB [Suspect]
     Active Substance: RITUXIMAB
     Indication: B-CELL LYMPHOMA
     Dosage: 600 MG, UNK
     Route: 042
     Dates: start: 20140922, end: 20141008
  13. CO-AMOXICLAV                       /00756801/ [Concomitant]
     Active Substance: AMOXICILLIN\CLAVULANIC ACID
     Dosage: UNK
     Dates: start: 20140925

REACTIONS (1)
  - Febrile neutropenia [Recovered/Resolved]

NARRATIVE: CASE EVENT DATE: 20141007
